FAERS Safety Report 6703277-2 (Version None)
Quarter: 2010Q2

REPORT INFORMATION
  Report Type: 
  Country: None (occurrence: None)
  Receive Date: 20100428
  Receipt Date: 20100415
  Transmission Date: 20101027
  Serious: Yes (Hospitalization)
  Sender: FDA-Public Use
  Company Number: 2010AP000778

PATIENT
  Age: 80 Year
  Sex: Male

DRUGS (5)
  1. RAMIPRIL [Suspect]
     Indication: MYOCARDIAL INFARCTION
     Dosage: 2.5 MG; PO
     Route: 048
     Dates: start: 20090301, end: 20100321
  2. ALENDRONIC ACID (ALENDRONIC ACID) [Concomitant]
  3. ASPIRIN [Concomitant]
  4. SIMVASTATIN [Concomitant]
  5. THEOPHYLLINE [Concomitant]

REACTIONS (2)
  - ANGIOEDEMA [None]
  - THROAT TIGHTNESS [None]
